FAERS Safety Report 9821162 (Version 1)
Quarter: 2014Q1

REPORT INFORMATION
  Report Type: Spontaneous
  Country: GB (occurrence: None)
  Receive Date: 20140114
  Receipt Date: 20140114
  Transmission Date: 20141002
  Serious: Yes (Life-Threatening)
  Sender: FDA-Public Use
  Company Number: AUR-APL-2014-00233

PATIENT
  Age: 57 Year
  Sex: Male

DRUGS (2)
  1. TERBINAFINE [Suspect]
     Indication: FUNGAL INFECTION
     Route: 048
     Dates: start: 20130924, end: 20131111
  2. PHENOBARBITAL (PHENOBARBITAL) [Concomitant]

REACTIONS (8)
  - Orchitis [None]
  - Dermatitis exfoliative [None]
  - Groin pain [None]
  - Renal failure acute [None]
  - Hepatic function abnormal [None]
  - Thrombocytopenia [None]
  - Atrial fibrillation [None]
  - Respiratory failure [None]
